FAERS Safety Report 13725020 (Version 1)
Quarter: 2017Q3

REPORT INFORMATION
  Report Type: Report from Study
  Country: US (occurrence: US)
  Receive Date: 20170706
  Receipt Date: 20170706
  Transmission Date: 20171127
  Serious: Yes (Hospitalization, Other)
  Sender: FDA-Public Use
  Company Number: US-MALLINCKRODT-T201702294

PATIENT
  Sex: Female

DRUGS (3)
  1. REPOSITORY CORTICOTROPIN INJECTION [Suspect]
     Active Substance: CORTICOTROPIN
     Indication: OPTIC NEURITIS
     Dosage: 80 UNITS / 1 ML, EVERY 3 DAYS / EVERY 72 HOURS
     Route: 058
     Dates: start: 20170424
  2. PREDNISONE. [Suspect]
     Active Substance: PREDNISONE
     Dosage: 80 UNITS/1 ML, EVERY 3 DAYS/ EVERY 72 HOURS
     Route: 058
     Dates: start: 20170424
  3. PREDNISONE. [Suspect]
     Active Substance: PREDNISONE
     Dosage: 80 UNITS/1 ML, EVERY 3 DAYS/ EVERY 72 HOURS
     Route: 058
     Dates: start: 20170424

REACTIONS (5)
  - Diabetes mellitus [Not Recovered/Not Resolved]
  - Hypertension [Recovered/Resolved]
  - Malaise [Recovered/Resolved]
  - Cushing^s syndrome [Not Recovered/Not Resolved]
  - Hyperglycaemia [Recovered/Resolved]
